FAERS Safety Report 11808940 (Version 1)
Quarter: 2015Q4

REPORT INFORMATION
  Report Type: Spontaneous
  Country: US (occurrence: US)
  Receive Date: 20151207
  Receipt Date: 20151207
  Transmission Date: 20160305
  Serious: No
  Sender: FDA-Public Use
  Company Number: US-ROCHE-1618633

PATIENT
  Sex: Female
  Weight: 94 kg

DRUGS (3)
  1. VALIUM [Suspect]
     Active Substance: DIAZEPAM
     Indication: PRODUCT USED FOR UNKNOWN INDICATION
     Dosage: AS NEEDED
     Route: 048
  2. ZIPRASIDONE HYDROCHLORIDE. [Suspect]
     Active Substance: ZIPRASIDONE HYDROCHLORIDE
     Indication: PSYCHOTIC DISORDER
     Dosage: ONE DURING DAY, THREE AT NIGHT
     Route: 048
     Dates: start: 2015
  3. VISTARIL [Concomitant]
     Active Substance: HYDROXYZINE PAMOATE
     Indication: INSOMNIA
     Dosage: 3 TABLETS AT NIGHT
     Route: 065

REACTIONS (5)
  - Depression [Not Recovered/Not Resolved]
  - Treatment noncompliance [Unknown]
  - Weight increased [Not Recovered/Not Resolved]
  - Drug ineffective [Unknown]
  - Hunger [Not Recovered/Not Resolved]
